FAERS Safety Report 19139254 (Version 1)
Quarter: 2021Q2

REPORT INFORMATION
  Report Type: Spontaneous
  Country: US (occurrence: US)
  Receive Date: 20210414
  Receipt Date: 20210414
  Transmission Date: 20210717
  Serious: Yes (Other)
  Sender: FDA-Public Use
  Company Number: None

PATIENT
  Age: 6 Year
  Sex: Male
  Weight: 29.7 kg

DRUGS (2)
  1. MONTELUKAST SOD 5 MG TAB CHEW #3 [Suspect]
     Active Substance: MONTELUKAST SODIUM
     Indication: MULTIPLE ALLERGIES
     Dosage: ?          QUANTITY:1 TABLET(S);OTHER FREQUENCY:IN THE EVENING;?
     Route: 048
     Dates: start: 20181101, end: 20200101
  2. MONTELUKAST SOD 5 MG TAB CHEW #3 [Suspect]
     Active Substance: MONTELUKAST SODIUM
     Indication: RHINITIS
     Dosage: ?          QUANTITY:1 TABLET(S);OTHER FREQUENCY:IN THE EVENING;?
     Route: 048
     Dates: start: 20181101, end: 20200101

REACTIONS (3)
  - Hallucination, visual [None]
  - Somnambulism [None]
  - Suicidal ideation [None]

NARRATIVE: CASE EVENT DATE: 20200101
